FAERS Safety Report 5294938-3 (Version None)
Quarter: 2007Q2

REPORT INFORMATION
  Report Type: 
  Country: None (occurrence: None)
  Receive Date: 20070412
  Receipt Date: 20060301
  Transmission Date: 20071010
  Serious: Yes (Other)
  Sender: FDA-Public Use
  Company Number: 200611078EU

PATIENT
  Age: 30 Year
  Sex: Female

DRUGS (1)
  1. NICORETTE [Suspect]
     Indication: DRUG USE FOR UNKNOWN INDICATION
     Dosage: 2MG SINGLE DOSE
     Route: 002
     Dates: start: 20050101, end: 20050101

REACTIONS (1)
  - ASPHYXIA [None]
